FAERS Safety Report 5912460-5 (Version None)
Quarter: 2008Q4

REPORT INFORMATION
  Report Type: 
  Country: None (occurrence: None)
  Receive Date: 20081007
  Receipt Date: 20081007
  Transmission Date: 20090506
  Serious: Yes (Hospitalization)
  Sender: FDA-Public Use
  Company Number: None

PATIENT
  Age: 80 Year
  Sex: Female
  Weight: 49.8 kg

DRUGS (12)
  1. MELOXICAM [Suspect]
     Indication: PAIN
     Dosage: 7.5MG DAILY PO
     Route: 048
  2. PIOGLITAZONE [Concomitant]
  3. RAMIPRIL [Concomitant]
  4. AMLODIPINE [Concomitant]
  5. ATENOLOL [Concomitant]
  6. LATORADINE [Concomitant]
  7. ESCITALOPRAM [Concomitant]
  8. METFORMIN HCL [Concomitant]
  9. OMEPRAZOLE [Concomitant]
  10. TIMOLOL [Concomitant]
  11. LATANOPROST [Concomitant]
  12. SIMVASTATIN [Concomitant]

REACTIONS (7)
  - DIARRHOEA [None]
  - DIZZINESS [None]
  - DYSURIA [None]
  - FAECES DISCOLOURED [None]
  - FALL [None]
  - HEADACHE [None]
  - WEIGHT DECREASED [None]
